FAERS Safety Report 9007490 (Version 1)
Quarter: 2013Q1

REPORT INFORMATION
  Report Type: Spontaneous
  Country: US (occurrence: US)
  Receive Date: 20130111
  Receipt Date: 20130111
  Transmission Date: 20140127
  Serious: Yes (Other)
  Sender: FDA-Public Use
  Company Number: US-009507513-0902USA00810

PATIENT
  Age: 5 Year
  Sex: Male
  Weight: 19.5 kg

DRUGS (5)
  1. MONTELUKAST SODIUM [Suspect]
     Indication: RHINITIS ALLERGIC
     Dosage: 4 MG, QD
     Route: 048
     Dates: start: 20080907, end: 20080912
  2. MONTELUKAST SODIUM [Suspect]
     Indication: FOOD ALLERGY
  3. LORATADINE [Concomitant]
  4. VITAMINS (UNSPECIFIED) [Concomitant]
  5. NASONEX [Concomitant]

REACTIONS (5)
  - Chills [Unknown]
  - Drug intolerance [Unknown]
  - Fear [Unknown]
  - Formication [Unknown]
  - Sleep terror [Unknown]
